FAERS Safety Report 4353095-8 (Version None)
Quarter: 2004Q2

REPORT INFORMATION
  Report Type: 
  Country: None (occurrence: None)
  Receive Date: 20040430
  Receipt Date: 20040227
  Transmission Date: 20050107
  Serious: No
  Sender: FDA-Public Use
  Company Number: 204942

PATIENT
  Age: 54 Year
  Sex: Female
  Weight: 74.8 kg

DRUGS (8)
  1. XOLAIR [Suspect]
     Indication: ASTHMA
     Dosage: Q2W, SUBCUTANEOUS
     Route: 058
     Dates: start: 20030801, end: 20040212
  2. ADVAIR DISKUS [Concomitant]
  3. SINGULAIR [Concomitant]
  4. COMBIVENT (ALBUTEROL, ALBUTEROL SULFATE, IPRATROPIUM BROMIDE) [Concomitant]
  5. PREDNISONE [Concomitant]
  6. XOPENEX [Concomitant]
  7. PREMARIN [Concomitant]
  8. PROTONIX [Concomitant]

REACTIONS (2)
  - HYPOAESTHESIA ORAL [None]
  - PAIN IN EXTREMITY [None]
